FAERS Safety Report 6756677-9 (Version None)
Quarter: 2010Q2

REPORT INFORMATION
  Report Type: 
  Country: None (occurrence: None)
  Receive Date: 20100603
  Receipt Date: 20100603
  Transmission Date: 20101027
  Serious: Yes (Disabling)
  Sender: FDA-Public Use
  Company Number: None

PATIENT
  Sex: Male
  Weight: 76.6579 kg

DRUGS (2)
  1. ZICAM - MATRIX INITIATIVES NASAL GEL SWABS [Suspect]
     Indication: NASAL CONGESTION
     Dosage: 3 SWABS GEL 1 WEEK
     Dates: start: 20090101, end: 20090331
  2. ZICAM - MATRIX INITIATIVES NASAL GEL SWABS [Suspect]
     Indication: SINUS CONGESTION
     Dosage: 3 SWABS GEL 1 WEEK
     Dates: start: 20090101, end: 20090331

REACTIONS (2)
  - AGEUSIA [None]
  - ANOSMIA [None]
